FAERS Safety Report 10059644 (Version 1)
Quarter: 2014Q2

REPORT INFORMATION
  Report Type: Spontaneous
  Country: US (occurrence: US)
  Receive Date: 20140404
  Receipt Date: 20140404
  Transmission Date: 20141212
  Serious: No
  Sender: FDA-Public Use
  Company Number: US-GLAXOSMITHKLINE-A1034977A

PATIENT
  Sex: Female

DRUGS (2)
  1. ALLI [Suspect]
     Indication: WEIGHT DECREASED
  2. VITAMINS [Concomitant]

REACTIONS (6)
  - Gastrointestinal disorder [Recovered/Resolved]
  - Dysgeusia [Unknown]
  - Nausea [Not Recovered/Not Resolved]
  - Vomiting [Unknown]
  - Food aversion [Not Recovered/Not Resolved]
  - Decreased appetite [Not Recovered/Not Resolved]
